FAERS Safety Report 17988115 (Version 1)
Quarter: 2020Q3

REPORT INFORMATION
  Report Type: Spontaneous
  Country: HR (occurrence: HR)
  Receive Date: 20200707
  Receipt Date: 20200707
  Transmission Date: 20201103
  Serious: Yes (Disabling)
  Sender: FDA-Public Use
  Company Number: HR-ACCORD-189127

PATIENT
  Age: 45 Year
  Sex: Female

DRUGS (3)
  1. DOCETAXEL ACCORD [Suspect]
     Active Substance: DOCETAXEL
     Indication: INVASIVE DUCTAL BREAST CARCINOMA
     Dosage: APPETITE LOST,OEDEMA FINGER,?BODY TEMPERATURE INCREASED ADR ISN^T ADEQUATELY LABELLED HANGNAIL
     Route: 042
     Dates: start: 202005
  2. GOPTEN [Concomitant]
     Active Substance: TRANDOLAPRIL
     Route: 048
  3. CONCOR COR [Concomitant]
     Active Substance: BISOPROLOL FUMARATE
     Route: 048

REACTIONS (8)
  - Decreased appetite [Unknown]
  - Myalgia [Recovering/Resolving]
  - Hangnail [Unknown]
  - Body temperature increased [Unknown]
  - Nail disorder [Recovering/Resolving]
  - Fatigue [Unknown]
  - Palmar-plantar erythrodysaesthesia syndrome [Recovering/Resolving]
  - Oedema peripheral [Unknown]

NARRATIVE: CASE EVENT DATE: 202005
